FAERS Safety Report 9870563 (Version 1)
Quarter: 2014Q1

REPORT INFORMATION
  Report Type: Report from Study
  Country: CA (occurrence: CA)
  Receive Date: 20140205
  Receipt Date: 20140205
  Transmission Date: 20141002
  Serious: Yes (Other)
  Sender: FDA-Public Use
  Company Number: CA-JNJFOC-20140115043

PATIENT
  Age: 10 Year
  Sex: Male
  Weight: 17.7 kg

DRUGS (2)
  1. REMICADE [Suspect]
     Indication: UVEITIS
     Route: 042
  2. REMICADE [Suspect]
     Indication: UVEITIS
     Route: 042

REACTIONS (4)
  - Cataract [Unknown]
  - Cystoid macular oedema [Unknown]
  - Uveitis [Unknown]
  - Off label use [Unknown]
